FAERS Safety Report 8458941-4 (Version None)
Quarter: 2012Q2

REPORT INFORMATION
  Report Type: 
  Country: None (occurrence: None)
  Receive Date: 20120622
  Receipt Date: 20101026
  Transmission Date: 20120825
  Serious: No
  Sender: FDA-Public Use
  Company Number: JP-BAYER-2012-057048

PATIENT
  Age: 63 Year
  Sex: Female
  Weight: 71 kg

DRUGS (3)
  1. SORAFENIB (RAF KINASE INHIBITOR) [Suspect]
     Indication: HEPATIC NEOPLASM MALIGNANT
     Dosage: 200 MG, UNK
     Route: 048
     Dates: start: 20100707, end: 20100729
  2. SORAFENIB (RAF KINASE INHIBITOR) [Suspect]
     Dosage: 200 MG, QD
     Route: 048
     Dates: start: 20110223, end: 20110101
  3. SORAFENIB (RAF KINASE INHIBITOR) [Suspect]
     Dosage: 200 MG, QD
     Route: 048
     Dates: start: 20100830, end: 20101110

REACTIONS (6)
  - HEPATIC FUNCTION ABNORMAL [None]
  - OEDEMA [None]
  - PLATELET COUNT DECREASED [None]
  - ASCITES [None]
  - ALOPECIA [None]
  - PALMAR-PLANTAR ERYTHRODYSAESTHESIA SYNDROME [None]
